FAERS Safety Report 8865540 (Version 1)
Quarter: 2012Q4

REPORT INFORMATION
  Report Type: 
  Country: US (occurrence: US)
  Receive Date: 20121024
  Receipt Date: 20121024
  Transmission Date: 20130627
  Serious: No
  Sender: FDA-Public Use
  Company Number: US-AMGEN-USASP2012003658

PATIENT
  Sex: Female

DRUGS (14)
  1. ENBREL [Suspect]
     Indication: PRODUCT USED FOR UNKNOWN INDICATION
     Dosage: 50 mg, qwk
  2. PREDNISONE [Concomitant]
     Dosage: 5 mg, UNK
  3. METHOTREXATE [Concomitant]
     Dosage: 2.5 mg, UNK
  4. PREMPRO [Concomitant]
  5. CYMBALTA [Concomitant]
     Dosage: 30 mg, UNK
  6. LODINE [Concomitant]
     Dosage: 400 mg, UNK
  7. ZANTAC [Concomitant]
     Dosage: 300 mg, UNK
  8. MAXALT MLT [Concomitant]
     Dosage: 5 mg, UNK
  9. FOLIC ACID [Concomitant]
     Dosage: 20 mg, UNK
  10. VITAMIN D /00107901/ [Concomitant]
     Dosage: 1000 IU, UNK
  11. ACYCLOVIR                          /00587301/ [Concomitant]
     Dosage: 200 mg, UNK
  12. PRAVASTATIN [Concomitant]
     Dosage: 40 mg, UNK
  13. VICODIN ES [Concomitant]
  14. VALIUM                             /00017001/ [Concomitant]
     Dosage: 5 mg, UNK

REACTIONS (2)
  - Injection site erythema [Unknown]
  - Injection site pain [Unknown]
